FAERS Safety Report 7369672-6 (Version None)
Quarter: 2011Q1

REPORT INFORMATION
  Report Type: 
  Country: None (occurrence: None)
  Receive Date: 20110323
  Receipt Date: 20110316
  Transmission Date: 20110831
  Serious: Yes (Other)
  Sender: FDA-Public Use
  Company Number: DE-BRISTOL-MYERS SQUIBB COMPANY-15515554

PATIENT
  Age: 67 Year
  Sex: Male

DRUGS (11)
  1. TRUVADA [Suspect]
     Indication: HIV INFECTION
  2. PYRAZINAMIDE [Concomitant]
  3. SULFADIAZINE [Concomitant]
     Indication: TOXOPLASMOSIS
  4. PYRIMETHAMINE [Concomitant]
     Indication: TOXOPLASMOSIS
  5. RIFABUTIN [Concomitant]
  6. RALTEGRAVIR [Suspect]
     Indication: HIV INFECTION
  7. ISONIAZID [Concomitant]
  8. RITONAVIR [Suspect]
     Indication: HIV INFECTION
  9. REYATAZ [Suspect]
     Indication: HIV INFECTION
     Dates: start: 20090101
  10. ETHAMBUTOL HYDROCHLORIDE [Concomitant]
  11. CALCIUM FOLINATE [Concomitant]
     Indication: TOXOPLASMOSIS

REACTIONS (2)
  - THERAPEUTIC RESPONSE DECREASED [None]
  - PLASMABLASTIC LYMPHOMA [None]
